FAERS Safety Report 16779859 (Version 1)
Quarter: 2019Q3

REPORT INFORMATION
  Report Type: Spontaneous
  Country: GB (occurrence: GB)
  Receive Date: 20190906
  Receipt Date: 20190906
  Transmission Date: 20191005
  Serious: Yes (Life-Threatening, Hospitalization, Disabling)
  Sender: FDA-Public Use
  Company Number: GB-ASTRAZENECA-2019SF25371

PATIENT
  Age: 77 Year
  Sex: Male
  Weight: 80.2 kg

DRUGS (6)
  1. CLOTRIMAZOLE. [Concomitant]
     Active Substance: CLOTRIMAZOLE
  2. NUTRITIONAL SUPPLEMENT [Concomitant]
     Active Substance: DIETARY SUPPLEMENT
     Dosage: THREE TIMES A DAY
  3. LANSOPRAZOLE. [Concomitant]
     Active Substance: LANSOPRAZOLE
  4. BISACODYL. [Concomitant]
     Active Substance: BISACODYL
  5. DURVALUMAB. [Suspect]
     Active Substance: DURVALUMAB
     Indication: CLEAR CELL RENAL CELL CARCINOMA
     Route: 042
     Dates: start: 201906
  6. BENDROFLUMETHIAZIDE [Concomitant]
     Active Substance: BENDROFLUMETHIAZIDE

REACTIONS (2)
  - Muscular weakness [Not Recovered/Not Resolved]
  - Transaminases increased [Unknown]

NARRATIVE: CASE EVENT DATE: 201907
